FAERS Safety Report 21255364 (Version 1)
Quarter: 2022Q3

REPORT INFORMATION
  Report Type: Spontaneous
  Country: PT (occurrence: PT)
  Receive Date: 20220825
  Receipt Date: 20220825
  Transmission Date: 20221027
  Serious: Yes (Other)
  Sender: FDA-Public Use
  Company Number: None

PATIENT
  Age: 16 Year
  Sex: Female

DRUGS (5)
  1. TOPAMAX [Suspect]
     Active Substance: TOPIRAMATE
     Indication: Product used for unknown indication
     Route: 048
     Dates: start: 20220802, end: 20220804
  2. XANAX [Concomitant]
     Active Substance: ALPRAZOLAM
     Route: 048
  3. TRAZODONE HYDROCHLORIDE [Concomitant]
     Active Substance: TRAZODONE HYDROCHLORIDE
     Route: 048
  4. QUETIAPINE [Concomitant]
     Active Substance: QUETIAPINE
     Route: 048
  5. PAROXETINE [Concomitant]
     Active Substance: PAROXETINE
     Route: 048

REACTIONS (1)
  - Gait inability [Recovered/Resolved]

NARRATIVE: CASE EVENT DATE: 20220806
